FAERS Safety Report 20162000 (Version 2)
Quarter: 2021Q4

REPORT INFORMATION
  Report Type: Spontaneous
  Country: IT (occurrence: None)
  Receive Date: 20211208
  Receipt Date: 20211231
  Transmission Date: 20220303
  Serious: Yes (Life-Threatening, Other)
  Sender: FDA-Public Use
  Company Number: 2021A861455

PATIENT
  Age: 75 Year
  Sex: Female

DRUGS (4)
  1. QUETIAPINE [Suspect]
     Active Substance: QUETIAPINE
     Route: 048
  2. MIRTAZAPINE [Suspect]
     Active Substance: MIRTAZAPINE
     Route: 065
  3. DELORAZEPAM [Suspect]
     Active Substance: DELORAZEPAM
     Route: 065
  4. ZOLPIDEM [Suspect]
     Active Substance: ZOLPIDEM TARTRATE
     Route: 065

REACTIONS (5)
  - Suicide attempt [Unknown]
  - Intentional product misuse [Unknown]
  - Pulmonary embolism [Unknown]
  - Respiratory failure [Unknown]
  - Hyponatraemia [Unknown]
